FAERS Safety Report 19159114 (Version 2)
Quarter: 2021Q2

REPORT INFORMATION
  Report Type: Report from Study
  Country: IT (occurrence: IT)
  Receive Date: 20210420
  Receipt Date: 20210603
  Transmission Date: 20210717
  Serious: Yes (Death, Life-Threatening, Hospitalization)
  Sender: FDA-Public Use
  Company Number: IT-PFIZER INC-2021418601

PATIENT
  Age: 63 Year
  Sex: Female
  Weight: 69 kg

DRUGS (4)
  1. DAPTOMYCINE [Concomitant]
     Active Substance: DAPTOMYCIN
     Dosage: UNK
     Dates: start: 20171009, end: 20171011
  2. AMOXICILLINE SODIUM [Concomitant]
     Active Substance: AMOXICILLIN SODIUM
     Dosage: UNK
     Dates: start: 20171011
  3. VALCYTE [Concomitant]
     Active Substance: VALGANCICLOVIR HYDROCHLORIDE
     Dosage: UNK
     Dates: start: 20170922, end: 20171011
  4. MEDROL [Suspect]
     Active Substance: METHYLPREDNISOLONE
     Indication: ACUTE GRAFT VERSUS HOST DISEASE
     Dosage: 2 MG/KG, 1X/DAY
     Route: 048
     Dates: start: 20170922, end: 20171011

REACTIONS (5)
  - Staphylococcal infection [Fatal]
  - Pneumonia [Fatal]
  - Dyspnoea [Fatal]
  - Septic shock [Fatal]
  - Abscess limb [Not Recovered/Not Resolved]

NARRATIVE: CASE EVENT DATE: 20171004
